FAERS Safety Report 4194980 (Version 10)
Quarter: 2021Q2

REPORT INFORMATION
  Report Type: Report from Study
  Country: JP (occurrence: JP)
  Receive Date: 20040823
  Receipt Date: 20210514
  Transmission Date: 20210717
  Serious: Yes (Other)
  Sender: FDA-Public Use
  Company Number: PHHO2004JP09448

PATIENT
  Age: 66 Year
  Sex: Male
  Weight: 57 kg

DRUGS (11)
  1. AMARYL [Concomitant]
     Active Substance: GLIMEPIRIDE
     Indication: DIABETES MELLITUS
     Dosage: UNK
     Route: 065
  2. LECICARBON [Concomitant]
     Active Substance: SODIUM BICARBONATE\SODIUM PHOSPHATE, MONOBASIC
     Indication: CONSTIPATION
     Dosage: UNK
     Route: 065
  3. LOXONIN [Suspect]
     Active Substance: LOXOPROFEN SODIUM
     Indication: SPINAL CORD INJURY THORACIC
     Dosage: 120 MG
     Route: 065
     Dates: start: 20030503, end: 20040701
  4. BUP?4 [Concomitant]
     Active Substance: PROPIVERINE
     Indication: SPINAL CORD INJURY THORACIC
     Dosage: UNK
     Route: 065
  5. TANATRIL [Concomitant]
     Active Substance: IMIDAPRIL
     Indication: OEDEMA
     Dosage: UNK
     Route: 065
     Dates: start: 20030529
  6. IMATINIB TAB [Suspect]
     Active Substance: IMATINIB
     Indication: CHRONIC MYELOID LEUKAEMIA
     Dosage: 400 MG, QD
     Route: 048
     Dates: start: 20030110, end: 20050829
  7. SELBEX [Concomitant]
     Active Substance: TEPRENONE
     Indication: GASTRITIS
     Dosage: UNK
     Route: 065
  8. LOXOPROFEN SODIUM [Concomitant]
     Active Substance: LOXOPROFEN SODIUM
     Indication: SPINAL CORD INJURY THORACIC
     Dosage: UNK
     Route: 065
     Dates: end: 20030507
  9. VOLTAREN [Concomitant]
     Active Substance: DICLOFENAC SODIUM
     Indication: SPINAL CORD INJURY THORACIC
     Dosage: UNK
     Route: 065
     Dates: end: 20030710
  10. LOXONIN [Suspect]
     Active Substance: LOXOPROFEN SODIUM
     Dosage: 120 MG
     Route: 065
     Dates: start: 20040930
  11. ALOSENN [Concomitant]
     Indication: SPINAL CORD INJURY THORACIC
     Dosage: UNK
     Route: 065
     Dates: end: 20040604

REACTIONS (35)
  - Dermatitis bullous [Recovered/Resolved]
  - Oedema peripheral [Not Recovered/Not Resolved]
  - Blister [Recovered/Resolved]
  - Nasopharyngitis [Recovered/Resolved]
  - Skin abrasion [Recovered/Resolved]
  - Herpes zoster [Recovered/Resolved]
  - Abdominal discomfort [Recovered/Resolved]
  - Weight decreased [Recovered/Resolved]
  - Decubitus ulcer [Not Recovered/Not Resolved]
  - Red blood cell count decreased [Not Recovered/Not Resolved]
  - Melaena [Recovered/Resolved]
  - Dermatitis bullous [Recovered/Resolved]
  - Nausea [Recovered/Resolved]
  - Dermatitis contact [Recovered/Resolved]
  - Skin abrasion [Recovered/Resolved]
  - Lymphopenia [Recovered/Resolved]
  - Haemoptysis [Recovered/Resolved]
  - Lymphopenia [Not Recovered/Not Resolved]
  - Nausea [Not Recovered/Not Resolved]
  - Face oedema [Recovered/Resolved]
  - Conjunctival haemorrhage [Recovered/Resolved]
  - Tongue coated [Recovered/Resolved]
  - Occult blood positive [Recovered/Resolved]
  - Dermatophytosis of nail [Not Recovered/Not Resolved]
  - Skin exfoliation [Recovered/Resolved]
  - Decreased appetite [Recovered/Resolved]
  - Anaemia [Recovered/Resolved]
  - Haemoglobin decreased [Unknown]
  - Gastrointestinal haemorrhage [Recovered/Resolved]
  - Gastrointestinal haemorrhage [Recovered/Resolved]
  - Occult blood [Not Recovered/Not Resolved]
  - Vision blurred [Unknown]
  - Haematocrit decreased [Not Recovered/Not Resolved]
  - Nausea [Recovered/Resolved]
  - Colon adenoma [Unknown]

NARRATIVE: CASE EVENT DATE: 20030130
